FAERS Safety Report 18755959 (Version 1)
Quarter: 2021Q1

REPORT INFORMATION
  Report Type: Spontaneous
  Country: US (occurrence: US)
  Receive Date: 20210116
  Receipt Date: 20210116
  Transmission Date: 20210419
  Serious: Yes (Disabling)
  Sender: FDA-Public Use
  Company Number: None

PATIENT
  Age: 77 Year
  Sex: Male
  Weight: 81.8 kg

DRUGS (1)
  1. WARFARIN [Suspect]
     Active Substance: WARFARIN
     Dosage: ?          OTHER FREQUENCY:MWF,5MG OTHER DAY;?

REACTIONS (4)
  - Subarachnoid haemorrhage [None]
  - Intraventricular haemorrhage [None]
  - Mental status changes [None]
  - Pyrexia [None]

NARRATIVE: CASE EVENT DATE: 20201111
